FAERS Safety Report 14752892 (Version 3)
Quarter: 2018Q2

REPORT INFORMATION
  Report Type: Spontaneous
  Country: US (occurrence: US)
  Receive Date: 20180412
  Receipt Date: 20180607
  Transmission Date: 20180711
  Serious: Yes (Hospitalization, Other)
  Sender: FDA-Public Use
  Company Number: US-JNJFOC-20180401637

PATIENT
  Age: 14 Year
  Sex: Female
  Weight: 66 kg

DRUGS (2)
  1. REMICADE [Suspect]
     Active Substance: INFLIXIMAB
     Indication: CROHN^S DISEASE
     Dosage: 300 MG
     Route: 042
     Dates: start: 20180102, end: 20180329
  2. REMICADE [Suspect]
     Active Substance: INFLIXIMAB
     Indication: CROHN^S DISEASE
     Dosage: 300 MG
     Route: 042
     Dates: start: 20171222

REACTIONS (6)
  - Drug specific antibody present [Unknown]
  - Oxygen saturation decreased [Recovered/Resolved]
  - Suspected product contamination [Unknown]
  - Crohn^s disease [Recovered/Resolved]
  - Infusion related reaction [Recovered/Resolved]
  - Poor peripheral circulation [Recovered/Resolved]

NARRATIVE: CASE EVENT DATE: 2018
